FAERS Safety Report 18582238 (Version 15)
Quarter: 2022Q2

REPORT INFORMATION
  Report Type: Spontaneous
  Country: GB (occurrence: GB)
  Receive Date: 20201204
  Receipt Date: 20220630
  Transmission Date: 20220721
  Serious: Yes (Hospitalization, Other)
  Sender: FDA-Public Use
  Company Number: GB-MHRA-ADR 24535299

PATIENT
  Age: 68 Year
  Sex: Male

DRUGS (17)
  1. APIXABAN [Suspect]
     Active Substance: APIXABAN
     Indication: Pulmonary embolism
     Dosage: 10 MILLIGRAM, ONCE A DAY
     Route: 065
  2. CLOPIDOGREL [Suspect]
     Active Substance: CLOPIDOGREL BISULFATE
     Indication: Transient ischaemic attack
     Dosage: 75 MILLIGRAM, ONCE A DAY
     Route: 065
  3. ELIQUIS [Suspect]
     Active Substance: APIXABAN
     Indication: Pulmonary embolism
     Dosage: 10 MILLIGRAM, ONCE A DAY
     Route: 065
  4. PREDNISOLONE [Suspect]
     Active Substance: PREDNISOLONE
     Indication: Vasculitis
     Dosage: 60 MILLIGRAM, ONCE A DAY
     Route: 065
  5. ACYCLOVIR [Concomitant]
     Active Substance: ACYCLOVIR
     Indication: Product used for unknown indication
     Dosage: 400 MILLIGRAM, ONCE A DAY
     Route: 065
  6. CALCIUM CARBONATE\CHOLECALCIFEROL [Concomitant]
     Active Substance: CALCIUM CARBONATE\CHOLECALCIFEROL
     Indication: Product used for unknown indication
     Dosage: 2 DOSAGE FORM, ONCE A DAY
     Route: 065
  7. BISOPROLOL [Concomitant]
     Active Substance: BISOPROLOL
     Indication: Transient ischaemic attack
     Dosage: 3.75 MILLIGRAM, ONCE A DAY
     Route: 065
  8. CLOBETASONE [Concomitant]
     Active Substance: CLOBETASONE
     Indication: Product used for unknown indication
     Dosage: 2 DOSAGE FORM, ONCE A DAY
     Route: 065
  9. COTRIMOXAZOLE [Concomitant]
     Active Substance: SULFAMETHOXAZOLE\TRIMETHOPRIM
     Indication: Product used for unknown indication
     Dosage: 480 MILLIGRAM, EVERY OTHER DAY
     Route: 048
  10. COTRIMOXAZOLE [Concomitant]
     Active Substance: SULFAMETHOXAZOLE\TRIMETHOPRIM
     Dosage: 80 MILLIGRAM, ON MONDAY, WEDNESDAY AND FRIDAY
     Route: 048
  11. COTRIMOXAZOLE [Concomitant]
     Active Substance: SULFAMETHOXAZOLE\TRIMETHOPRIM
     Dosage: 480 MILLIGRAM, BID;
     Route: 048
  12. CYCLOPHOSPHAMIDE [Concomitant]
     Active Substance: CYCLOPHOSPHAMIDE
     Indication: Product used for unknown indication
     Dosage: 100 MILLIGRAM, ONCE A DAY
     Route: 065
  13. DARBEPOETIN ALFA [Concomitant]
     Active Substance: DARBEPOETIN ALFA
     Indication: Product used for unknown indication
     Dosage: 30 MICROGRAM, EVERY WEEK
     Route: 058
  14. FLUCONAZOLE [Concomitant]
     Active Substance: FLUCONAZOLE
     Indication: Product used for unknown indication
     Dosage: 50 MILLIGRAM, ONCE A DAY
     Route: 065
  15. LANSOPRAZOLE [Concomitant]
     Active Substance: LANSOPRAZOLE
     Indication: Product used for unknown indication
     Dosage: 30 MILLIGRAM, ONCE A DAY
     Route: 065
  16. INSULIN ASPART [Concomitant]
     Active Substance: INSULIN ASPART
     Indication: Product used for unknown indication
     Dosage: 60 INTERNATIONAL UNIT, ONCE A DAY
     Route: 065
  17. INSULIN ASPART [Concomitant]
     Active Substance: INSULIN ASPART
     Indication: Product used for unknown indication
     Dosage: 28 INTERNATIONAL UNIT
     Route: 065

REACTIONS (8)
  - Amaurosis fugax [Unknown]
  - Circulatory collapse [Unknown]
  - Duodenal ulcer haemorrhage [Unknown]
  - Melaena [Unknown]
  - Pulmonary embolism [Unknown]
  - Transient ischaemic attack [Unknown]
  - Upper gastrointestinal haemorrhage [Unknown]
  - Drug ineffective [Unknown]
